FAERS Safety Report 14720767 (Version 1)
Quarter: 2018Q2

REPORT INFORMATION
  Report Type: Spontaneous
  Country: BR (occurrence: BR)
  Receive Date: 20180405
  Receipt Date: 20180405
  Transmission Date: 20180711
  Serious: Yes (Other)
  Sender: FDA-Public Use
  Company Number: BR-REGENERON PHARMACEUTICALS, INC.-2018-20140

PATIENT

DRUGS (1)
  1. EYLEA [Suspect]
     Active Substance: AFLIBERCEPT
     Indication: DIABETIC RETINAL OEDEMA
     Dosage: DOSE, FREQUENCY, TREATED EYE AND TOTAL NUMBER OF INJECTIONS RECEIVED NOT PROVIDED.
     Dates: start: 201803

REACTIONS (4)
  - Non-infectious endophthalmitis [Not Recovered/Not Resolved]
  - Anterior chamber disorder [Not Recovered/Not Resolved]
  - Vitritis [Not Recovered/Not Resolved]
  - Visual impairment [Not Recovered/Not Resolved]

NARRATIVE: CASE EVENT DATE: 201803
